FAERS Safety Report 7404902-3 (Version None)
Quarter: 2011Q2

REPORT INFORMATION
  Report Type: 
  Country: None (occurrence: None)
  Receive Date: 20110411
  Receipt Date: 20110329
  Transmission Date: 20111010
  Serious: No
  Sender: FDA-Public Use
  Company Number: US-JNJFOC-20110312701

PATIENT
  Sex: Female
  Weight: 99.79 kg

DRUGS (2)
  1. DURAGESIC [Suspect]
     Indication: PAIN
     Route: 062
  2. OXYCODONE [Concomitant]
     Indication: PAIN
     Route: 048

REACTIONS (3)
  - WITHDRAWAL SYNDROME [None]
  - MALAISE [None]
  - DRUG DOSE OMISSION [None]
